FAERS Safety Report 7265963-8 (Version None)
Quarter: 2011Q1

REPORT INFORMATION
  Report Type: 
  Country: None (occurrence: None)
  Receive Date: 20110131
  Receipt Date: 20110117
  Transmission Date: 20110831
  Serious: Yes (Hospitalization, Other)
  Sender: FDA-Public Use
  Company Number: PHHY2011TW04118

PATIENT

DRUGS (12)
  1. DICLOFENAC [Suspect]
  2. MELOXICAM [Suspect]
  3. LAMOTRIGINE [Suspect]
  4. ALLOPURINOL [Suspect]
  5. PHENYTOIN [Suspect]
  6. COTRIM [Suspect]
  7. CEFTRIAXONE [Suspect]
  8. DAPSONE [Suspect]
  9. CARBAMAZEPINE [Suspect]
  10. SULINDAC [Suspect]
  11. IMIPRAMINE [Suspect]
  12. PENICILLIN G BENETHAMINE+METHENAMINE+PENICILLIN G SODIUM [Suspect]

REACTIONS (21)
  - FACE OEDEMA [None]
  - HEPATIC ENZYME INCREASED [None]
  - HUMAN HERPES VIRUS 6 SEROLOGY POSITIVE [None]
  - RENAL DISORDER [None]
  - RASH ERYTHEMATOUS [None]
  - THROMBOCYTOPENIA [None]
  - PANCYTOPENIA [None]
  - ORAL DISORDER [None]
  - EPSTEIN-BARR VIRUS ANTIBODY POSITIVE [None]
  - PURPURA [None]
  - EOSINOPHILIA [None]
  - LYMPHADENOPATHY [None]
  - DERMATITIS EXFOLIATIVE [None]
  - BLISTER [None]
  - HYPERBILIRUBINAEMIA [None]
  - CYTOMEGALOVIRUS TEST POSITIVE [None]
  - PYREXIA [None]
  - LUNG DISORDER [None]
  - LYMPHOPENIA [None]
  - DRUG RASH WITH EOSINOPHILIA AND SYSTEMIC SYMPTOMS [None]
  - LYMPHOCYTOSIS [None]
